FAERS Safety Report 24273359 (Version 1)
Quarter: 2024Q3

REPORT INFORMATION
  Report Type: Spontaneous
  Country: US (occurrence: US)
  Receive Date: 20240902
  Receipt Date: 20240902
  Transmission Date: 20241016
  Serious: Yes (Other)
  Sender: BRISTOL MYERS SQUIBB
  Company Number: US-BRISTOL-MYERS SQUIBB COMPANY-2024-138366

PATIENT
  Age: 67 Year
  Sex: Male
  Weight: 130.63 kg

DRUGS (1)
  1. REVLIMID [Suspect]
     Active Substance: LENALIDOMIDE
     Indication: Product used for unknown indication
     Dosage: 3WEEKS ON 1 WEEK OFF
     Route: 048

REACTIONS (4)
  - Neuropathy peripheral [Recovering/Resolving]
  - Fatigue [Recovering/Resolving]
  - Fluid retention [Recovering/Resolving]
  - Joint swelling [Unknown]
